FAERS Safety Report 11908321 (Version 1)
Quarter: 2016Q1

REPORT INFORMATION
  Report Type: Spontaneous
  Country: US (occurrence: US)
  Receive Date: 20160111
  Receipt Date: 20160111
  Transmission Date: 20160526
  Serious: Yes (Death)
  Sender: FDA-Public Use
  Company Number: GXBR2016US000462

PATIENT
  Age: 75 Year
  Sex: Male

DRUGS (1)
  1. ZINC OXIDE. [Suspect]
     Active Substance: ZINC OXIDE
     Indication: SKIN DISORDER
     Dosage: UNK DF, UNK
     Route: 061

REACTIONS (2)
  - Amyotrophic lateral sclerosis [Fatal]
  - Disease progression [Fatal]
